FAERS Safety Report 10232492 (Version 2)
Quarter: 2014Q2

REPORT INFORMATION
  Report Type: Spontaneous
  Country: US (occurrence: US)
  Receive Date: 20140612
  Receipt Date: 20140623
  Transmission Date: 20141212
  Serious: Yes (Hospitalization)
  Sender: FDA-Public Use
  Company Number: US-SA-2014SA072269

PATIENT
  Age: 50 Year
  Sex: Male

DRUGS (9)
  1. LANTUS SOLOSTAR [Suspect]
     Indication: TYPE 1 DIABETES MELLITUS
     Dosage: DOSE:20 UNIT(S)
     Route: 065
  2. LANTUS SOLOSTAR [Suspect]
     Indication: TYPE 1 DIABETES MELLITUS
     Dosage: DOSE:30 UNIT(S)
     Route: 065
  3. APIDRA SOLOSTAR [Concomitant]
  4. SOLOSTAR [Concomitant]
  5. LIPITOR [Concomitant]
  6. BETA BLOCKING AGENTS [Concomitant]
  7. ACE INHIBITOR NOS [Concomitant]
  8. ASPIRIN [Concomitant]
  9. ANTITHROMBOTIC AGENTS [Concomitant]

REACTIONS (5)
  - Myocardial infarction [Unknown]
  - Oropharyngeal pain [Unknown]
  - Nasopharyngitis [Unknown]
  - Blood glucose increased [Not Recovered/Not Resolved]
  - Pollakiuria [Not Recovered/Not Resolved]
